FAERS Safety Report 20566593 (Version 1)
Quarter: 2022Q1

REPORT INFORMATION
  Report Type: Spontaneous
  Country: US (occurrence: US)
  Receive Date: 20220308
  Receipt Date: 20220308
  Transmission Date: 20220424
  Serious: No
  Sender: FDA-Public Use
  Company Number: US-HORIZON THERAPEUTICS-HZN-2021-000725

PATIENT
  Sex: Male

DRUGS (1)
  1. PENNSAID [Suspect]
     Active Substance: DICLOFENAC SODIUM
     Indication: Arthropathy
     Dosage: USES IT A COUPLE TIMES A DAY. ONCE IN THE MORNING AND ONCE IN THE AFTERNOON

REACTIONS (1)
  - Product dose omission issue [Not Recovered/Not Resolved]
